FAERS Safety Report 14376812 (Version 1)
Quarter: 2018Q1

REPORT INFORMATION
  Report Type: Spontaneous
  Country: US (occurrence: US)
  Receive Date: 20180110
  Receipt Date: 20180110
  Transmission Date: 20180509
  Serious: No
  Sender: FDA-Public Use
  Company Number: None

PATIENT
  Age: 60 Year
  Sex: Female

DRUGS (1)
  1. SPRYCEL [Suspect]
     Active Substance: DASATINIB

REACTIONS (4)
  - Hypoaesthesia [None]
  - Diarrhoea [None]
  - Hyperglycaemia [None]
  - Fatigue [None]

NARRATIVE: CASE EVENT DATE: 20170801
